FAERS Safety Report 4382383-4 (Version None)
Quarter: 2004Q2

REPORT INFORMATION
  Report Type: 
  Country: None (occurrence: None)
  Receive Date: 20040618
  Receipt Date: 20040603
  Transmission Date: 20050107
  Serious: Yes (Hospitalization)
  Sender: FDA-Public Use
  Company Number: 04-0033

PATIENT
  Age: 4 Month
  Sex: Male

DRUGS (1)
  1. ACCUHIST PEDIATRIC DROPS [Suspect]
     Indication: UPPER RESPIRATORY TRACT INFECTION
     Dosage: 1/4 DROPPERFUL QID

REACTIONS (2)
  - CONVULSION [None]
  - ELECTROENCEPHALOGRAM ABNORMAL [None]
